FAERS Safety Report 6256956-8 (Version None)
Quarter: 2009Q3

REPORT INFORMATION
  Report Type: 
  Country: None (occurrence: None)
  Receive Date: 20090701
  Receipt Date: 20090701
  Transmission Date: 20100115
  Serious: Yes (Hospitalization)
  Sender: FDA-Public Use
  Company Number: None

PATIENT
  Sex: Male
  Weight: 68.8 kg

DRUGS (5)
  1. CYCLOPHOSPHAMIDE [Suspect]
     Dosage: 1175 MG
  2. DOXORUBICIN HCL [Suspect]
     Dosage: 120 MG
  3. PREDNISONE TAB [Suspect]
     Dosage: 990 MG
  4. RITUXIMAB (MOAB C2B8 ANTI CD20, CHIMERIC) [Suspect]
     Dosage: 678 MG
  5. VINCRISTINE SULFATE [Suspect]
     Dosage: 2.88 MG

REACTIONS (12)
  - ACINETOBACTER INFECTION [None]
  - BACTERIAL INFECTION [None]
  - BLOOD CULTURE POSITIVE [None]
  - BODY TEMPERATURE INCREASED [None]
  - CATHETER RELATED INFECTION [None]
  - COUGH [None]
  - ENTEROBACTER INFECTION [None]
  - OROPHARYNGEAL PAIN [None]
  - RHINORRHOEA [None]
  - STAPHYLOCOCCAL INFECTION [None]
  - TACHYCARDIA [None]
  - WHITE BLOOD CELL COUNT DECREASED [None]
